FAERS Safety Report 7638764-6 (Version None)
Quarter: 2011Q3

REPORT INFORMATION
  Report Type: 
  Country: None (occurrence: None)
  Receive Date: 20110727
  Receipt Date: 20110713
  Transmission Date: 20111222
  Serious: Yes (Death)
  Sender: FDA-Public Use
  Company Number: JP-ROCHE-790017

PATIENT
  Sex: Male
  Weight: 69 kg

DRUGS (1)
  1. AVASTIN [Suspect]
     Indication: MALIGNANT GLIOMA
     Route: 041
     Dates: start: 20090901, end: 20100622

REACTIONS (2)
  - LYMPHOCYTE COUNT DECREASED [None]
  - DISEASE PROGRESSION [None]
